FAERS Safety Report 5458632-8 (Version None)
Quarter: 2007Q3

REPORT INFORMATION
  Report Type: 
  Country: None (occurrence: None)
  Receive Date: 20070919
  Receipt Date: 20070409
  Transmission Date: 20080115
  Serious: No
  Sender: FDA-Public Use
  Company Number: US-ASTRAZENECA-2007UW06984

PATIENT
  Age: 25 Year
  Sex: Female
  Weight: 57.6 kg

DRUGS (2)
  1. SEROQUEL [Suspect]
     Indication: BIPOLAR DISORDER
     Route: 048
  2. TEMAZEPAM [Concomitant]

REACTIONS (2)
  - HAIR GROWTH ABNORMAL [None]
  - LIVER FUNCTION TEST ABNORMAL [None]
